FAERS Safety Report 9735457 (Version 2)
Quarter: 2015Q3

REPORT INFORMATION
  Report Type: Spontaneous
  Country: US (occurrence: US)
  Receive Date: 20131206
  Receipt Date: 20150804
  Transmission Date: 20151125
  Serious: No
  Sender: FDA-Public Use
  Company Number: US-GILEAD-2009-0022846

PATIENT
  Age: 65 Year
  Sex: Male
  Weight: 107.95 kg

DRUGS (14)
  1. LANTUS [Concomitant]
     Active Substance: INSULIN GLARGINE
  2. ANTACID CALCIUM [Concomitant]
  3. CLOBETASOL [Concomitant]
     Active Substance: CLOBETASOL
  4. ZEMPLAR [Concomitant]
     Active Substance: PARICALCITOL
  5. RENAGEL [Concomitant]
     Active Substance: SEVELAMER HYDROCHLORIDE
  6. ASPIRIN. [Concomitant]
     Active Substance: ASPIRIN
  7. HUMULIN R [Concomitant]
     Active Substance: INSULIN HUMAN
  8. HEPARIN [Concomitant]
     Active Substance: HEPARIN SODIUM
  9. LETAIRIS [Suspect]
     Active Substance: AMBRISENTAN
     Route: 048
     Dates: start: 20080909
  10. CEPHALEXIN. [Concomitant]
     Active Substance: CEPHALEXIN
  11. OXYGEN. [Concomitant]
     Active Substance: OXYGEN
  12. PRILOSEC [Concomitant]
     Active Substance: OMEPRAZOLE MAGNESIUM
  13. TRICOR [Concomitant]
     Active Substance: FENOFIBRATE
  14. VITAMIN [Concomitant]
     Active Substance: VITAMINS

REACTIONS (1)
  - Asthenia [Unknown]
